FAERS Safety Report 17228732 (Version 14)
Quarter: 2021Q2

REPORT INFORMATION
  Report Type: Spontaneous
  Country: US (occurrence: US)
  Receive Date: 20200103
  Receipt Date: 20210614
  Transmission Date: 20210716
  Serious: No
  Sender: FDA-Public Use
  Company Number: US-VERTEX PHARMACEUTICALS-2019-013821

PATIENT
  Sex: Female

DRUGS (31)
  1. LEVOTHYROXINE. [Concomitant]
     Active Substance: LEVOTHYROXINE
     Dosage: UNK
  2. EZETIMIBE. [Concomitant]
     Active Substance: EZETIMIBE
  3. DOXYCYCLIN AL [DOXYCYCLINE HYDROCHLORIDE] [Concomitant]
  4. FLUCONAZOLE. [Concomitant]
     Active Substance: FLUCONAZOLE
  5. NITROFUR [Concomitant]
     Active Substance: NITROFURANTOIN
  6. PROAIR HFA [Concomitant]
     Active Substance: ALBUTEROL SULFATE
  7. ALBUTEROL [SALBUTAMOL] [Concomitant]
     Active Substance: ALBUTEROL
  8. CHOLESTYRAMIN [Concomitant]
     Active Substance: CHOLESTYRAMINE
  9. TRIKAFTA [Suspect]
     Active Substance: ELEXACAFTOR\IVACAFTOR\TEZACAFTOR
     Dosage: 1 TAB (ELEXA 100 MG, TEZA 50 MG, IVA 75 MG) IN AM; 1 TAB (IVA 150 MG) IN PM
     Route: 048
  10. FLAVOXATE [Concomitant]
     Active Substance: FLAVOXATE
  11. TRIAMCINOLONE [Concomitant]
     Active Substance: TRIAMCINOLONE
  12. ESTRACE [Concomitant]
     Active Substance: ESTRADIOL
     Dosage: HORMONAL CREAM
  13. HYDROXYCHLOROQUINE [Concomitant]
     Active Substance: HYDROXYCHLOROQUINE
     Dosage: ONCE WEEKLY
  14. BUDESONIDE. [Concomitant]
     Active Substance: BUDESONIDE
  15. LEVOTHYROXIN [Concomitant]
     Active Substance: LEVOTHYROXINE
  16. HYPERSAL [Concomitant]
     Active Substance: SODIUM CHLORIDE
  17. LEVOFLOXACIN. [Concomitant]
     Active Substance: LEVOFLOXACIN
  18. METRONIDAZOLE. [Concomitant]
     Active Substance: METRONIDAZOLE
  19. AZITHROMYCIN ANHYDROUS. [Concomitant]
     Active Substance: AZITHROMYCIN ANHYDROUS
  20. TRIKAFTA [Suspect]
     Active Substance: ELEXACAFTOR\IVACAFTOR\TEZACAFTOR
     Indication: CYSTIC FIBROSIS
     Dosage: 2 TABS OF ELEXA 100 MG, TEZA 50 MG, IVA 75 MG AM; 1 TAB IVA 150 MG PM
     Route: 048
     Dates: start: 201910
  21. TRIKAFTA [Suspect]
     Active Substance: ELEXACAFTOR\IVACAFTOR\TEZACAFTOR
     Dosage: 2 TABS OF ELEXA 100 MG, TEZA 50 MG, IVA 75 MG AM; 1 TAB IVA 150 MG PM
     Route: 048
     Dates: start: 20200321
  22. AMITRIPTYLINE [Concomitant]
     Active Substance: AMITRIPTYLINE
  23. DICLOFENAC [Concomitant]
     Active Substance: DICLOFENAC
  24. AZELASTINE. [Concomitant]
     Active Substance: AZELASTINE HYDROCHLORIDE
  25. SPIRONOLACTON [Concomitant]
     Active Substance: SPIRONOLACTONE
     Dosage: UNK
  26. IVERMECTIN. [Concomitant]
     Active Substance: IVERMECTIN
  27. PREDNISONE. [Concomitant]
     Active Substance: PREDNISONE
  28. TRIKAFTA [Suspect]
     Active Substance: ELEXACAFTOR\IVACAFTOR\TEZACAFTOR
     Dosage: ALTERNATING 2 ORANGE TAB WITH 1 ORANGE TAB IN MORNING
     Route: 048
  29. FLUOCINONIDE. [Concomitant]
     Active Substance: FLUOCINONIDE
  30. OSMOPREP [Concomitant]
     Active Substance: SODIUM PHOSPHATE, DIBASIC, ANHYDROUS\SODIUM PHOSPHATE, MONOBASIC, MONOHYDRATE
  31. TRIAMCINOLON HBF [Concomitant]

REACTIONS (24)
  - Alopecia [Not Recovered/Not Resolved]
  - Fatigue [Not Recovered/Not Resolved]
  - Eructation [Not Recovered/Not Resolved]
  - Cough [Recovered/Resolved]
  - Increased bronchial secretion [Recovered/Resolved]
  - Syncope [Not Recovered/Not Resolved]
  - Dry eye [Unknown]
  - Blood cholesterol increased [Not Recovered/Not Resolved]
  - Muscle spasms [Recovered/Resolved]
  - Abdominal discomfort [Not Recovered/Not Resolved]
  - Headache [Recovered/Resolved]
  - Lung disorder [Unknown]
  - Sinus disorder [Not Recovered/Not Resolved]
  - Weight increased [Unknown]
  - Rash pruritic [Recovered/Resolved]
  - Dizziness [Not Recovered/Not Resolved]
  - Rash erythematous [Recovering/Resolving]
  - Epigastric discomfort [Not Recovered/Not Resolved]
  - Pain of skin [Not Recovered/Not Resolved]
  - Skin burning sensation [Not Recovered/Not Resolved]
  - Musculoskeletal discomfort [Not Recovered/Not Resolved]
  - Muscle strength abnormal [Recovered/Resolved]
  - Urinary tract infection [Not Recovered/Not Resolved]
  - Flatulence [Not Recovered/Not Resolved]

NARRATIVE: CASE EVENT DATE: 2019
